FAERS Safety Report 13394923 (Version 1)
Quarter: 2017Q2

REPORT INFORMATION
  Report Type: Spontaneous
  Country: GB (occurrence: GB)
  Receive Date: 20170403
  Receipt Date: 20170403
  Transmission Date: 20170830
  Serious: Yes (Disabling)
  Sender: FDA-Public Use
  Company Number: GB-UCBSA-2017012084

PATIENT
  Age: 38 Year
  Sex: Female
  Weight: 142 kg

DRUGS (1)
  1. VIMPAT [Suspect]
     Active Substance: LACOSAMIDE
     Indication: THYROID DISORDER
     Dosage: 100 MG, ONCE DAILY (QD), STRENGTH 50 MG
     Route: 048
     Dates: start: 20170217, end: 20170307

REACTIONS (2)
  - Photopsia [Recovered/Resolved]
  - Vision blurred [Recovered/Resolved]

NARRATIVE: CASE EVENT DATE: 2017
